FAERS Safety Report 6380317-4 (Version None)
Quarter: 2009Q3

REPORT INFORMATION
  Report Type: 
  Country: None (occurrence: None)
  Receive Date: 20090929
  Receipt Date: 20090921
  Transmission Date: 20100115
  Serious: Yes (Death)
  Sender: FDA-Public Use
  Company Number: FR-ROCHE-658314

PATIENT

DRUGS (12)
  1. MYCOPHENOLATE MOFETIL [Suspect]
     Dosage: CONCENTRATED-CONTROLLED DOSES
     Route: 065
  2. MYCOPHENOLATE MOFETIL [Suspect]
     Dosage: DOSE ADAPTED BEYOND DAY 7 BASED ON MPA AUC 0-12 H, TO REACH THE VALUE TO 30-60MG H/L
     Route: 065
     Dates: start: 20070401, end: 20071201
  3. SULFAMETHOXAZOLE AND TRIMETHOPRIM [Suspect]
     Route: 065
  4. GANCICLOVIR [Suspect]
     Route: 042
  5. VALGANCICLOVIR HCL [Suspect]
     Dosage: FREQUENCY: 450 OR 900 MG PER DAY.
     Route: 048
  6. ATGAM [Suspect]
     Dosage: FORM: INFUSION, INDUCTION THERAPY, FIRST INFUSION, AFTER COMPLETION OF TRANSPLANTATION
     Route: 065
  7. ATGAM [Suspect]
     Dosage: FROM DAY1 TO 4
     Route: 065
  8. TACROLIMUS [Suspect]
     Dosage: STARTED ON DAY 5 TARGET TROUGH LEVEL OF 8-12 NG/ML
     Route: 065
  9. METHYLPREDNISOLONE 4MG TAB [Suspect]
     Dosage: 30 MINUTES PRIOR ANTILYMPHOCYTE GLOBULIN
     Route: 042
  10. METHYLPREDNISOLONE 4MG TAB [Suspect]
     Dosage: 3 METHYLPREDNISOLONE PULSES
     Route: 042
  11. PARACETAMOL [Concomitant]
     Route: 042
  12. DIPHENHYDRAMINE HCL [Concomitant]
     Route: 042

REACTIONS (1)
  - HEPATIC NEOPLASM MALIGNANT RECURRENT [None]
